FAERS Safety Report 8270442-5 (Version None)
Quarter: 2012Q2

REPORT INFORMATION
  Report Type: 
  Country: None (occurrence: None)
  Receive Date: 20120410
  Receipt Date: 20120405
  Transmission Date: 20120825
  Serious: Yes (Hospitalization)
  Sender: FDA-Public Use
  Company Number: PHHY2011DE94708

PATIENT
  Age: 81 Year
  Sex: Female

DRUGS (3)
  1. TASIGNA [Suspect]
     Indication: CHRONIC MYELOID LEUKAEMIA
     Dates: start: 20110504
  2. MARCUMAR [Concomitant]
  3. METOPROLOL TARTRATE AND HYDROCHLOROTHIAZIDE [Concomitant]

REACTIONS (7)
  - PLEURAL EFFUSION [None]
  - RENAL FUNCTION TEST ABNORMAL [None]
  - PRURITUS [None]
  - DYSPNOEA [None]
  - HEPATIC FUNCTION ABNORMAL [None]
  - CARDIAC DISORDER [None]
  - PNEUMONIA [None]
